FAERS Safety Report 4545264-9 (Version None)
Quarter: 2005Q1

REPORT INFORMATION
  Report Type: 
  Country: None (occurrence: None)
  Receive Date: 20050105
  Receipt Date: 20041230
  Transmission Date: 20050727
  Serious: Yes (Death, Life-Threatening, Hospitalization, Other)
  Sender: FDA-Public Use
  Company Number: CA-JNJFOC-20041201090

PATIENT
  Sex: Female

DRUGS (4)
  1. DURAGESIC [Suspect]
     Route: 062
  2. DURAGESIC [Suspect]
     Route: 062
  3. DURAGESIC [Suspect]
     Indication: CANCER PAIN
     Route: 062
  4. DILAUDID [Concomitant]
     Indication: PALLIATIVE CARE
     Dosage: 2 MG, TWO TO THREE TIMES DAILY
     Route: 049

REACTIONS (5)
  - BREAST CANCER METASTATIC [None]
  - DEPRESSED LEVEL OF CONSCIOUSNESS [None]
  - LOSS OF CONSCIOUSNESS [None]
  - RESPIRATORY DEPRESSION [None]
  - WEIGHT DECREASED [None]
